FAERS Safety Report 9127986 (Version 2)
Quarter: 2013Q3

REPORT INFORMATION
  Report Type: Report from Study
  Country: JP (occurrence: JP)
  Receive Date: 20130228
  Receipt Date: 20130703
  Transmission Date: 20140515
  Serious: Yes (Hospitalization, Other)
  Sender: FDA-Public Use
  Company Number: JP-ASTELLAS-2013US002061

PATIENT
  Age: 59 Year
  Sex: Male

DRUGS (16)
  1. ERLOTINIB TABLET [Suspect]
     Indication: PANCREATIC CARCINOMA
     Dosage: 100 MG, UID/QD
     Route: 048
     Dates: start: 20120423, end: 20120502
  2. ERLOTINIB TABLET [Suspect]
     Dosage: 100 MG, UID/QD
     Route: 048
     Dates: start: 20120507, end: 20120802
  3. GEMCITABINE HYDROCHLORIDE [Concomitant]
     Indication: PANCREATIC CARCINOMA
     Dosage: 1000 MG/M2, UID/QD
     Route: 042
     Dates: start: 20120423, end: 20120423
  4. GEMCITABINE HYDROCHLORIDE [Concomitant]
     Dosage: 1000 MG/M2, UID/QD
     Route: 042
     Dates: start: 20120430, end: 20120430
  5. GEMCITABINE HYDROCHLORIDE [Concomitant]
     Dosage: 1000 MG/M2, UID/QD
     Route: 042
     Dates: start: 20120507, end: 20120507
  6. GEMCITABINE HYDROCHLORIDE [Concomitant]
     Dosage: 1000 MG/M2, UID/QD
     Route: 042
     Dates: start: 20120521, end: 20120521
  7. GEMCITABINE HYDROCHLORIDE [Concomitant]
     Dosage: 1000 MG/M2, UID/QD
     Route: 042
     Dates: start: 20120528, end: 20120528
  8. GEMCITABINE HYDROCHLORIDE [Concomitant]
     Dosage: 1000 MG/M2, UID/QD
     Route: 042
     Dates: start: 20120604, end: 20120604
  9. GEMCITABINE HYDROCHLORIDE [Concomitant]
     Dosage: 1000 MG/M2, UID/QD
     Route: 042
     Dates: start: 20120618, end: 20120618
  10. GEMCITABINE HYDROCHLORIDE [Concomitant]
     Dosage: 1000 MG/M2, UID/QD
     Route: 042
     Dates: start: 20120625, end: 20120625
  11. GEMCITABINE HYDROCHLORIDE [Concomitant]
     Dosage: 1000 MG/M2, UID/QD
     Route: 042
     Dates: start: 20120702, end: 20120702
  12. GEMCITABINE HYDROCHLORIDE [Concomitant]
     Dosage: 1000 MG/M2, UID/QD
     Route: 042
     Dates: start: 20120717, end: 20120717
  13. GEMCITABINE HYDROCHLORIDE [Concomitant]
     Dosage: 1000 MG/M2, UID/QD
     Route: 042
     Dates: start: 20120723, end: 20120723
  14. GEMCITABINE HYDROCHLORIDE [Concomitant]
     Dosage: 1000 MG/M2, UID/QD
     Route: 042
     Dates: start: 20120730, end: 20120730
  15. GEMCITABINE HYDROCHLORIDE [Concomitant]
     Dosage: 1000 MG/M2, UID/QD
     Route: 042
     Dates: start: 20120822
  16. CISPLATIN [Concomitant]
     Indication: PRODUCT USED FOR UNKNOWN INDICATION
     Dosage: UNK
     Route: 065

REACTIONS (5)
  - Pulmonary embolism [Recovered/Resolved]
  - Malignant neoplasm progression [Unknown]
  - Drug eruption [Recovered/Resolved]
  - Paronychia [Recovered/Resolved]
  - Folliculitis [Recovered/Resolved]
